FAERS Safety Report 24743938 (Version 1)
Quarter: 2024Q4

REPORT INFORMATION
  Report Type: Spontaneous
  Country: US (occurrence: US)
  Receive Date: 20241217
  Receipt Date: 20241217
  Transmission Date: 20250114
  Serious: Yes (Other)
  Sender: DR REDDYS
  Company Number: US-DRL-USA-SPO/USA/24/0018493

PATIENT

DRUGS (1)
  1. ESGIC [Suspect]
     Active Substance: ACETAMINOPHEN\BUTALBITAL\CAFFEINE
     Indication: Product used for unknown indication
     Route: 065

REACTIONS (8)
  - Neonatal respiratory distress syndrome [Unknown]
  - Congenital hypoplasia of depressor angularis oris muscle [Unknown]
  - Gross motor delay [Unknown]
  - Premature baby [Unknown]
  - Phimosis [Unknown]
  - Cryptorchism [Unknown]
  - Jaundice neonatal [Unknown]
  - Gastrooesophageal reflux disease [Unknown]
